FAERS Safety Report 16356506 (Version 2)
Quarter: 2019Q3

REPORT INFORMATION
  Report Type: Report from Study
  Country: MX (occurrence: MX)
  Receive Date: 20190527
  Receipt Date: 20190701
  Transmission Date: 20191004
  Serious: Yes (Hospitalization)
  Sender: FDA-Public Use
  Company Number: MX-UCBSA-2019021341

PATIENT
  Age: 7 Month
  Sex: Male
  Weight: 7 kg

DRUGS (2)
  1. LEVETIRACETAM. [Suspect]
     Active Substance: LEVETIRACETAM
     Dosage: 0.8 MILLILITER, 2X/DAY (BID)
     Route: 048
     Dates: start: 201903
  2. LEVETIRACETAM. [Suspect]
     Active Substance: LEVETIRACETAM
     Indication: SEIZURE
     Dosage: 0.4 MILLILITER, 2X/DAY (BID)
     Route: 048
     Dates: start: 201812, end: 2019

REACTIONS (1)
  - Asthma [Not Recovered/Not Resolved]

NARRATIVE: CASE EVENT DATE: 20190513
